FAERS Safety Report 5515641-8 (Version None)
Quarter: 2007Q4

REPORT INFORMATION
  Report Type: 
  Country: None (occurrence: None)
  Receive Date: 20071113
  Receipt Date: 20070720
  Transmission Date: 20080405
  Serious: No
  Sender: FDA-Public Use
  Company Number: A0665365A

PATIENT
  Age: 62 Year
  Sex: Female

DRUGS (17)
  1. COREG [Suspect]
     Dosage: 25MG TWICE PER DAY
     Route: 048
  2. AMBORAL [Concomitant]
  3. INSULIN [Concomitant]
  4. PLAVIX [Concomitant]
  5. DIGITEK [Concomitant]
  6. IMURAN [Concomitant]
  7. NEXIUM [Concomitant]
  8. PRANDIN [Concomitant]
  9. METFORMIN HCL [Concomitant]
  10. INDERAL [Concomitant]
  11. TRICOR [Concomitant]
  12. PRANDIN [Concomitant]
  13. JANUMET [Concomitant]
  14. PREDNISOLONE [Concomitant]
  15. EVISTA [Concomitant]
  16. BENICAR [Concomitant]
  17. METHOTREXATE [Concomitant]

REACTIONS (2)
  - DIZZINESS [None]
  - HYPOTENSION [None]
